FAERS Safety Report 21969085 (Version 1)
Quarter: 2023Q1

REPORT INFORMATION
  Report Type: Spontaneous
  Country: US (occurrence: US)
  Receive Date: 20230208
  Receipt Date: 20230208
  Transmission Date: 20230418
  Serious: Yes (Other)
  Sender: FDA-Public Use
  Company Number: US-ADMA BIOLOGICS INC.-US-2023ADM000010

PATIENT

DRUGS (2)
  1. HUMAN IMMUNOGLOBULIN G [Suspect]
     Active Substance: HUMAN IMMUNOGLOBULIN G
     Indication: Atrioventricular block second degree
     Dosage: UNKNOWN
     Route: 064
  2. DEXAMETHASONE [Suspect]
     Active Substance: DEXAMETHASONE
     Indication: Atrioventricular block second degree
     Dosage: UNK
     Route: 064

REACTIONS (2)
  - Atrioventricular block complete [Unknown]
  - Foetal exposure during pregnancy [Unknown]
